FAERS Safety Report 24725120 (Version 2)
Quarter: 2024Q4

REPORT INFORMATION
  Report Type: Spontaneous
  Country: US (occurrence: US)
  Receive Date: 20241212
  Receipt Date: 20241212
  Transmission Date: 20250115
  Serious: No
  Sender: ALEXION PHARMACEUTICALS
  Company Number: US-AstraZeneca-CH-00723174AP

PATIENT

DRUGS (4)
  1. FASENRA [Suspect]
     Active Substance: BENRALIZUMAB
     Dosage: EVERY 8 WEEKS
     Route: 065
  2. FASENRA [Suspect]
     Active Substance: BENRALIZUMAB
     Dosage: EVERY 8 WEEKS
     Route: 065
  3. FASENRA [Suspect]
     Active Substance: BENRALIZUMAB
     Dosage: EVERY 8 WEEKS
     Route: 065
  4. FASENRA [Suspect]
     Active Substance: BENRALIZUMAB
     Dosage: EVERY 8 WEEKS
     Route: 065

REACTIONS (7)
  - Wrong technique in device usage process [Unknown]
  - Product dose omission issue [Unknown]
  - Injection site bruising [Unknown]
  - Fear of injection [Unknown]
  - Feeling abnormal [Unknown]
  - Product packaging issue [Unknown]
  - Incorrect dose administered [Unknown]
